FAERS Safety Report 5804192-9 (Version None)
Quarter: 2008Q3

REPORT INFORMATION
  Report Type: 
  Country: None (occurrence: None)
  Receive Date: 20080707
  Receipt Date: 20080625
  Transmission Date: 20090109
  Serious: Yes (Other)
  Sender: FDA-Public Use
  Company Number: 2008RR-16106

PATIENT
  Age: 75 Year
  Sex: 0

DRUGS (1)
  1. SIMVASTATIN [Suspect]
     Indication: DRUG USE FOR UNKNOWN INDICATION
     Dosage: 40 MG
     Dates: start: 20050101

REACTIONS (2)
  - DIARRHOEA [None]
  - TRANSIENT ISCHAEMIC ATTACK [None]
